FAERS Safety Report 24153958 (Version 2)
Quarter: 2024Q3

REPORT INFORMATION
  Report Type: Report from Study
  Country: CA (occurrence: CA)
  Receive Date: 20240730
  Receipt Date: 20240814
  Transmission Date: 20241016
  Serious: Yes (Other)
  Sender: GILEAD
  Company Number: CA-GILEAD-2024-0681718

PATIENT
  Age: 16 Year
  Sex: Male

DRUGS (3)
  1. COBICISTAT\ELVITEGRAVIR\EMTRICITABINE\TENOFOVIR [Suspect]
     Active Substance: COBICISTAT\ELVITEGRAVIR\EMTRICITABINE\TENOFOVIR
     Indication: HIV infection
     Dosage: UNK
     Route: 065
  2. DARUNAVIR [Suspect]
     Active Substance: DARUNAVIR
     Indication: HIV infection
     Route: 048
  3. RILPIVIRINE [Suspect]
     Active Substance: RILPIVIRINE
     Indication: HIV infection
     Route: 048

REACTIONS (1)
  - Virologic failure [Unknown]
